FAERS Safety Report 18999829 (Version 1)
Quarter: 2021Q1

REPORT INFORMATION
  Report Type: Other
  Country: US (occurrence: US)
  Receive Date: 20210311
  Receipt Date: 20210311
  Transmission Date: 20210420
  Serious: Yes (Hospitalization)
  Sender: FDA-Public Use
  Company Number: US-ROCHE-2787246

PATIENT
  Sex: Female

DRUGS (1)
  1. OCREVUS [Suspect]
     Active Substance: OCRELIZUMAB
     Indication: RELAPSING MULTIPLE SCLEROSIS
     Dosage: PRESCRIBED AS 600 MG IV EVERY 6 MONTHS?DATE OF TREATMENT: 16/DEC/2017, 01/MAY/2018, 31/OCT/2018, 30/
     Route: 042
     Dates: start: 20171201

REACTIONS (1)
  - Pneumonia [Recovered/Resolved]
